FAERS Safety Report 4301011-7 (Version None)
Quarter: 2004Q1

REPORT INFORMATION
  Report Type: 
  Country: None (occurrence: None)
  Receive Date: 20040219
  Receipt Date: 20040210
  Transmission Date: 20041129
  Serious: Yes (Other)
  Sender: FDA-Public Use
  Company Number: K200400042

PATIENT
  Age: 13 Year
  Sex: Male

DRUGS (3)
  1. SYNERCID [Suspect]
     Indication: INFECTION
     Dosage: 7.5 MG/KG, TID, INTRAVENOUS; 10 MG/KG, TID, INTRAVENOUS
     Route: 042
  2. MEROPENEM (MEROPENEM) [Concomitant]
  3. AMBISOME [Concomitant]

REACTIONS (3)
  - DRUG INEFFECTIVE [None]
  - NEUTROPENIA [None]
  - SEPSIS [None]
